FAERS Safety Report 6244466-3 (Version None)
Quarter: 2009Q2

REPORT INFORMATION
  Report Type: 
  Country: None (occurrence: None)
  Receive Date: 20090625
  Receipt Date: 20090521
  Transmission Date: 20091009
  Serious: Yes (Hospitalization)
  Sender: FDA-Public Use
  Company Number: TR-ELI_LILLY_AND_COMPANY-TR200906003367

PATIENT
  Sex: Female

DRUGS (2)
  1. HUMALOG MIX 75/25 [Suspect]
     Indication: HYPERGLYCAEMIA
     Dosage: 12 IU, EACH MORNING
     Route: 058
     Dates: start: 20000101
  2. HUMALOG MIX 75/25 [Suspect]
     Dosage: 8 IU, EACH EVENING
     Route: 058
     Dates: start: 20000101

REACTIONS (2)
  - HYPERGLYCAEMIA [None]
  - LEG AMPUTATION [None]
